FAERS Safety Report 24148981 (Version 1)
Quarter: 2024Q3

REPORT INFORMATION
  Report Type: Spontaneous
  Country: US (occurrence: US)
  Receive Date: 20240729
  Receipt Date: 20240729
  Transmission Date: 20241016
  Serious: Yes (Hospitalization)
  Sender: FRESENIUS MEDICAL CARE
  Company Number: US-FMCRTG-FMC-2407-000867

PATIENT
  Age: 57 Year
  Sex: Female
  Weight: 90 kg

DRUGS (3)
  1. DELFLEX WITH DEXTROSE 1.5% LOW MAGNESIUM LOW CALCIUM [Suspect]
     Active Substance: CALCIUM CHLORIDE\DEXTROSE\MAGNESIUM CHLORIDE\SODIUM CHLORIDE\SODIUM LACTATE
     Indication: End stage renal disease
     Dosage: CCPD, 5 EXCHANGES, 2,500 ML FILL, LAST FILL 2,000ML, AND A DWELL TIME OF 1 HOUR AND 35 MINUTES.
     Route: 033
  2. DELFLEX WITH DEXTROSE 2.5% LOW MAGNESIUM LOW CALCIUM [Suspect]
     Active Substance: CALCIUM CHLORIDE\DEXTROSE\MAGNESIUM CHLORIDE\SODIUM CHLORIDE\SODIUM LACTATE
     Indication: End stage renal disease
     Dosage: CCPD, 5 EXCHANGES, 2,500 ML FILL, LAST FILL 2,000ML, AND A DWELL TIME OF 1 HOUR AND 35 MINUTES.
     Route: 033
  3. DELFLEX WITH DEXTROSE 4.25% LOW MAGNESIUM LOW CALCIUM [Suspect]
     Active Substance: CALCIUM CHLORIDE\DEXTROSE\MAGNESIUM CHLORIDE\SODIUM CHLORIDE\SODIUM LACTATE
     Indication: End stage renal disease
     Dosage: CCPD, 5 EXCHANGES, 2,500 ML FILL, LAST FILL 2,000ML, AND A DWELL TIME OF 1 HOUR AND 35 MINUTES.
     Route: 033

REACTIONS (4)
  - Dyspnoea [Unknown]
  - Peritonitis [Unknown]
  - Hypervolaemia [Unknown]
  - Incorrect dose administered [Unknown]
